FAERS Safety Report 9263298 (Version 1)
Quarter: 2013Q2

REPORT INFORMATION
  Report Type: Spontaneous
  Country: US (occurrence: US)
  Receive Date: 20130429
  Receipt Date: 20130429
  Transmission Date: 20140414
  Serious: Yes (Life-Threatening, Hospitalization, Other)
  Sender: FDA-Public Use
  Company Number: US-RB-052929-13

PATIENT
  Age: 3 Year
  Sex: Male

DRUGS (2)
  1. SUBUTEX [Suspect]
     Indication: ACCIDENTAL EXPOSURE TO PRODUCT BY CHILD
     Dosage: DOSING DETAILS UNKNOWN
     Route: 048
     Dates: start: 20130315, end: 20130315
  2. VALIUM [Suspect]
     Indication: ACCIDENTAL EXPOSURE TO PRODUCT BY CHILD
     Dosage: DOSING DETAILS UNKNOWN
     Route: 048
     Dates: start: 20130315, end: 20130315

REACTIONS (9)
  - Accidental exposure to product by child [Recovered/Resolved]
  - Toxicity to various agents [Unknown]
  - Altered state of consciousness [Unknown]
  - Hypopnoea [Unknown]
  - Somnolence [Unknown]
  - Gait disturbance [Unknown]
  - Glassy eyes [Unknown]
  - Snoring [Unknown]
  - Somnolence [Unknown]
